FAERS Safety Report 8862403 (Version 1)
Quarter: 2012Q4

REPORT INFORMATION
  Report Type: 
  Country: BR (occurrence: BR)
  Receive Date: 20121026
  Receipt Date: 20121026
  Transmission Date: 20130627
  Serious: Yes (Other)
  Sender: FDA-Public Use
  Company Number: BR-PFIZER INC-2012260750

PATIENT
  Age: 48 Year
  Sex: Female
  Weight: 90 kg

DRUGS (3)
  1. DEPO-PROVERA [Suspect]
     Indication: CONTRACEPTION
     Dosage: 150 mg, every 3 months
     Dates: start: 2005, end: 201104
  2. GLIBENCLAMIDE [Concomitant]
     Indication: DIABETES MELLITUS
     Dosage: UNK
     Dates: start: 2009, end: 2011
  3. METFORMIN [Concomitant]
     Indication: DIABETES MELLITUS
     Dosage: one tablet of 800mg daily
     Dates: start: 2009

REACTIONS (2)
  - Thrombosis [Not Recovered/Not Resolved]
  - Tuberculosis [Not Recovered/Not Resolved]
